FAERS Safety Report 7469251-6 (Version None)
Quarter: 2011Q2

REPORT INFORMATION
  Report Type: 
  Country: None (occurrence: None)
  Receive Date: 20110510
  Receipt Date: 20110429
  Transmission Date: 20111010
  Serious: Yes (Hospitalization)
  Sender: FDA-Public Use
  Company Number: SE-TEVA-279669ISR

PATIENT
  Sex: Male

DRUGS (8)
  1. ACETAMINOPHEN [Concomitant]
  2. BETAMETHASONE SODIUM PHOSPHATE [Concomitant]
  3. PRIMPERAN TAB [Concomitant]
  4. ACETYL SALICYLIC ACID USP BAT [Concomitant]
  5. INNOHEP [Concomitant]
  6. OXYCODONE HCL [Suspect]
     Indication: PAIN
     Dosage: 20 MILLIGRAM;
     Route: 048
     Dates: start: 20110307, end: 20110314
  7. SIMVASTATIN [Concomitant]
  8. NAPROXEN [Concomitant]

REACTIONS (1)
  - HALLUCINATION [None]
